FAERS Safety Report 5185554-2 (Version None)
Quarter: 2006Q4

REPORT INFORMATION
  Report Type: 
  Country: None (occurrence: None)
  Receive Date: 20061220
  Receipt Date: 20061208
  Transmission Date: 20070319
  Serious: Yes (Hospitalization)
  Sender: FDA-Public Use
  Company Number: US-BRISTOL-MYERS SQUIBB COMPANY-13611686

PATIENT
  Age: 79 Year
  Sex: Male
  Weight: 82 kg

DRUGS (12)
  1. WARFARIN SODIUM [Suspect]
     Indication: AORTIC VALVE REPLACEMENT
     Route: 048
     Dates: start: 20060628
  2. FELDENE [Suspect]
     Indication: OSTEOARTHRITIS
     Route: 048
     Dates: start: 19900101
  3. SU-011,248 [Suspect]
     Indication: RENAL CELL CARCINOMA STAGE UNSPECIFIED
     Route: 048
     Dates: start: 20051220
  4. ATENOLOL [Concomitant]
     Indication: AORTIC VALVE REPLACEMENT
     Route: 048
     Dates: start: 20030101
  5. TOLTERODINE [Concomitant]
     Indication: HYPERTONIC BLADDER
     Route: 048
     Dates: start: 20051101
  6. TAMSULOSIN HCL [Concomitant]
     Indication: HYPERTONIC BLADDER
     Route: 048
     Dates: start: 20041101
  7. MAALOX FAST BLOCKER [Concomitant]
     Indication: DYSPEPSIA
     Route: 048
     Dates: start: 20051101
  8. LORTAB [Concomitant]
     Indication: PAIN
     Route: 048
     Dates: start: 20051211
  9. LEUPROLIDE ACETATE [Concomitant]
     Indication: PROSTATE CANCER
     Route: 058
     Dates: start: 20051227
  10. CELECOXIB [Concomitant]
     Indication: OSTEOARTHRITIS
     Route: 048
     Dates: start: 20061015
  11. TERAZOSIN HCL [Concomitant]
     Indication: HYPERTONIC BLADDER
     Route: 048
     Dates: start: 20060628
  12. HEPARIN [Concomitant]
     Indication: AORTIC VALVE REPLACEMENT

REACTIONS (1)
  - ANAL FISSURE [None]
